FAERS Safety Report 18386353 (Version 1)
Quarter: 2020Q4

REPORT INFORMATION
  Report Type: Spontaneous
  Country: CN (occurrence: CN)
  Receive Date: 20201015
  Receipt Date: 20201015
  Transmission Date: 20210114
  Serious: Yes (Hospitalization)
  Sender: FDA-Public Use
  Company Number: CN-PFIZER INC-2020393118

PATIENT
  Age: 39 Year
  Sex: Male
  Weight: 60 kg

DRUGS (6)
  1. XI AI KE [Suspect]
     Active Substance: VINDESINE SULFATE
     Dosage: 4.000 MG, 1X/DAY
     Route: 040
     Dates: start: 20200924, end: 20200924
  2. DEXAMETHASONE SODIUM PHOSPHATE. [Suspect]
     Active Substance: DEXAMETHASONE SODIUM PHOSPHATE
     Indication: CHEMOTHERAPY
     Dosage: 17.000 MG, 1X/DAY
     Route: 041
     Dates: start: 20200918, end: 20200918
  3. ZAVEDOS [Suspect]
     Active Substance: IDARUBICIN
     Dosage: 10.000 MG, 1X/DAY
     Route: 041
     Dates: start: 20200920, end: 20200920
  4. PEGASPARGASE [Suspect]
     Active Substance: PEGASPARGASE
     Indication: CHEMOTHERAPY
     Dosage: 4.530 ML, 1X/DAY
     Route: 030
     Dates: start: 20200925, end: 20200925
  5. ZAVEDOS [Suspect]
     Active Substance: IDARUBICIN
     Indication: CHEMOTHERAPY
     Dosage: 10.000 MG, 2X/DAY
     Route: 041
     Dates: start: 20200918, end: 20200919
  6. XI AI KE [Suspect]
     Active Substance: VINDESINE SULFATE
     Indication: CHEMOTHERAPY
     Dosage: 4.000 MG, 1X/DAY
     Route: 040
     Dates: start: 20200918, end: 20200918

REACTIONS (1)
  - Agranulocytosis [Recovering/Resolving]

NARRATIVE: CASE EVENT DATE: 20200926
